FAERS Safety Report 16356856 (Version 2)
Quarter: 2019Q3

REPORT INFORMATION
  Report Type: Report from Study
  Country: US (occurrence: US)
  Receive Date: 20190527
  Receipt Date: 20190729
  Transmission Date: 20191004
  Serious: Yes (Other)
  Sender: FDA-Public Use
  Company Number: US-ROCHE-2320100

PATIENT
  Sex: Female
  Weight: 85.81 kg

DRUGS (1)
  1. OCREVUS [Suspect]
     Active Substance: OCRELIZUMAB
     Indication: PROGRESSIVE MULTIPLE SCLEROSIS
     Route: 042
     Dates: start: 20190211

REACTIONS (3)
  - Cardiac failure [Unknown]
  - Urinary tract infection [Unknown]
  - Immunodeficiency [Unknown]
